FAERS Safety Report 4349044-9 (Version None)
Quarter: 2004Q2

REPORT INFORMATION
  Report Type: 
  Country: None (occurrence: None)
  Receive Date: 20040427
  Receipt Date: 20040427
  Transmission Date: 20050107
  Serious: Yes (Life-Threatening, Other)
  Sender: FDA-Public Use
  Company Number: None

PATIENT
  Age: 36 Year
  Sex: Female

DRUGS (6)
  1. HALOPERIDOL [Suspect]
     Indication: BIPOLAR DISORDER
     Dosage: 10 MG IM
     Route: 030
     Dates: start: 20040128
  2. HALOPERIDOL [Suspect]
     Indication: SCHIZOPHRENIA
     Dosage: 10 MG IM
     Route: 030
     Dates: start: 20040128
  3. GEODON [Suspect]
     Dosage: 20 MG IM
     Route: 030
     Dates: start: 20040127
  4. RISPERAL M TABS [Concomitant]
  5. HALDOL [Concomitant]
  6. ABLITIFY [Concomitant]

REACTIONS (1)
  - NEUROLEPTIC MALIGNANT SYNDROME [None]
